FAERS Safety Report 8230715-9 (Version None)
Quarter: 2012Q1

REPORT INFORMATION
  Report Type: 
  Country: None (occurrence: None)
  Receive Date: 20120322
  Receipt Date: 20120322
  Transmission Date: 20120608
  Serious: Yes (Disabling)
  Sender: FDA-Public Use
  Company Number: None

PATIENT
  Age: 88 Year
  Sex: Female

DRUGS (10)
  1. EPOETIN [Concomitant]
  2. REVLIMID [Suspect]
     Indication: MULTIPLE MYELOMA
     Dosage: 5 MG EVERY OTHER DAY ORALLY
     Route: 048
     Dates: start: 20120101
  3. PRAZOSIN HCL [Concomitant]
  4. FUROSEMIDE [Concomitant]
  5. DOCUSATE [Concomitant]
  6. VERAPAMIL [Concomitant]
  7. CLOPIDOGREL [Concomitant]
  8. HYDRALAZINE HCL [Concomitant]
  9. LISINOPRIL [Concomitant]
  10. ERGOCALCIFEROLN [Concomitant]

REACTIONS (3)
  - DIZZINESS [None]
  - FATIGUE [None]
  - TREMOR [None]
